FAERS Safety Report 25720161 (Version 1)
Quarter: 2025Q3

REPORT INFORMATION
  Report Type: Spontaneous
  Country: US (occurrence: US)
  Receive Date: 20250825
  Receipt Date: 20250825
  Transmission Date: 20251020
  Serious: Yes (Other)
  Sender: AUROBINDO
  Company Number: US-AUROBINDO-AUR-APL-2025-043234

PATIENT
  Age: 13 Month
  Sex: Female

DRUGS (4)
  1. METRONIDAZOLE [Suspect]
     Active Substance: METRONIDAZOLE
     Indication: Infantile haemangioma
     Route: 061
  2. TIMOLOL MALEATE [Suspect]
     Active Substance: TIMOLOL MALEATE
     Indication: Infantile haemangioma
     Route: 061
  3. MUPIROCIN [Suspect]
     Active Substance: MUPIROCIN
     Indication: Infantile haemangioma
     Route: 061
  4. GENTAMICIN [Suspect]
     Active Substance: GENTAMICIN
     Indication: Infantile haemangioma
     Route: 061

REACTIONS (1)
  - Drug ineffective [Unknown]
